FAERS Safety Report 8087241 (Version 9)
Quarter: 2013Q3

REPORT INFORMATION
  Report Type: Report from Study
  Country: DE (occurrence: DE)
  Receive Date: 20110812
  Receipt Date: 20130816
  Transmission Date: 20140515
  Serious: Yes (Life-Threatening, Hospitalization, Other)
  Sender: FDA-Public Use
  Company Number: DE-BIOGENIDEC-2011BI029060

PATIENT
  Age: 31 Year
  Sex: Male

DRUGS (7)
  1. TYSABRI [Suspect]
     Indication: RELAPSING-REMITTING MULTIPLE SCLEROSIS
     Route: 042
     Dates: start: 20080507, end: 20110718
  2. REMERGIL [Concomitant]
  3. PANTOZOL [Concomitant]
  4. TAVOR [Concomitant]
  5. KEPPRA [Concomitant]
  6. MOVICOL [Concomitant]
  7. CLEXANE [Concomitant]
     Route: 058

REACTIONS (2)
  - Progressive multifocal leukoencephalopathy [Not Recovered/Not Resolved]
  - Immune reconstitution inflammatory syndrome [Not Recovered/Not Resolved]
